FAERS Safety Report 6555768-5 (Version None)
Quarter: 2010Q1

REPORT INFORMATION
  Report Type: 
  Country: None (occurrence: None)
  Receive Date: 20100128
  Receipt Date: 20100122
  Transmission Date: 20100710
  Serious: Yes (Congenital Anomaly)
  Sender: FDA-Public Use
  Company Number: GB-TEVA-222030ISR

PATIENT
  Sex: Female

DRUGS (2)
  1. METFORMIN [Suspect]
     Route: 064
     Dates: start: 20050510, end: 20090612
  2. BYETTA [Suspect]
     Route: 064
     Dates: start: 20080724, end: 20090612

REACTIONS (2)
  - CONGENITAL INTESTINAL MALFORMATION [None]
  - INTESTINAL MALROTATION [None]
